FAERS Safety Report 23305621 (Version 1)
Quarter: 2023Q4

REPORT INFORMATION
  Report Type: Spontaneous
  Country: CN (occurrence: CN)
  Receive Date: 20231218
  Receipt Date: 20231218
  Transmission Date: 20240109
  Serious: Yes (Hospitalization, Other)
  Sender: FDA-Public Use
  Company Number: None

PATIENT
  Age: 75 Year
  Sex: Female
  Weight: 65 kg

DRUGS (9)
  1. CYCLOPHOSPHAMIDE [Suspect]
     Active Substance: CYCLOPHOSPHAMIDE
     Indication: Abdominal neoplasm
     Dosage: 450 MG, ONE TIME IN ONE DAY, DAY 1, DILUTED WITH 40ML, 0.9% SODIUM CHLORIDE, Q21D
     Route: 042
     Dates: start: 20231120, end: 20231120
  2. SODIUM CHLORIDE [Suspect]
     Active Substance: SODIUM CHLORIDE
     Indication: Medication dilution
     Dosage: 40ML, ONE TIME IN ONE DAY, USED TO DILUTE 450 MG CYCLOPHOSPHAMIDE
     Route: 042
     Dates: start: 20231120, end: 20231120
  3. SODIUM CHLORIDE [Suspect]
     Active Substance: SODIUM CHLORIDE
     Dosage: 40ML, ONE TIME IN ONE DAY, USED TO DILUTE 30 MG DOXORUBICIN HYDROCHLORIDE
     Route: 042
     Dates: start: 20231120, end: 20231120
  4. SODIUM CHLORIDE [Suspect]
     Active Substance: SODIUM CHLORIDE
     Dosage: 40ML, ONE TIME IN ONE DAY, USED TO DILUTE 1MG VINCRISTINE SULFATE
     Route: 042
     Dates: start: 20231120, end: 20231120
  5. DEXTROSE [Suspect]
     Active Substance: DEXTROSE\DEXTROSE MONOHYDRATE
     Indication: Medication dilution
     Dosage: 500ML, ONE TIME IN ONE DAY, USED TO DILUTE 400 MG RITUXIMAB
     Route: 041
     Dates: start: 20231119, end: 20231119
  6. DOXORUBICIN HYDROCHLORIDE [Suspect]
     Active Substance: DOXORUBICIN HYDROCHLORIDE
     Indication: Abdominal neoplasm
     Dosage: 30 MG, ONE TIME IN ONE DAY, DAY 1, DILUTED WITH 40ML, 0.9% SODIUM CHLORIDE, Q21D
     Route: 042
     Dates: start: 20231120, end: 20231120
  7. VINCRISTINE SULFATE [Suspect]
     Active Substance: VINCRISTINE SULFATE
     Indication: Abdominal neoplasm
     Dosage: 1MG, ONE TIME IN ONE DAY, DAY 1, DILUTED WITH 40ML, 0.9% SODIUM CHLORIDE, Q21D
     Route: 042
     Dates: start: 20231120, end: 20231120
  8. RITUXIMAB [Suspect]
     Active Substance: RITUXIMAB
     Indication: Abdominal neoplasm
     Dosage: 400 MG, ONE TIME IN ONE DAY, DAY 0, DILUTED WITH 500ML, 5% GLUCOSE, Q21D
     Route: 041
     Dates: start: 20231119, end: 20231119
  9. PREDNISOLONE ACETATE [Suspect]
     Active Substance: PREDNISOLONE ACETATE
     Indication: Abdominal neoplasm
     Dosage: 50MG, D1-D5 (CYCLE Q21D)
     Route: 048
     Dates: start: 20231120, end: 20231124

REACTIONS (2)
  - Myelosuppression [Recovering/Resolving]
  - Platelet count decreased [Recovered/Resolved]

NARRATIVE: CASE EVENT DATE: 20231124
